FAERS Safety Report 21078458 (Version 1)
Quarter: 2022Q3

REPORT INFORMATION
  Report Type: Report from Study
  Country: US (occurrence: US)
  Receive Date: 20220713
  Receipt Date: 20220713
  Transmission Date: 20221027
  Serious: No
  Sender: FDA-Public Use
  Company Number: US-VANDA PHARMACEUTICALS, INC-2022TASUS005707

PATIENT
  Sex: Female
  Weight: 53.968 kg

DRUGS (5)
  1. HETLIOZ [Suspect]
     Active Substance: TASIMELTEON
     Indication: Sleep disorder
     Dosage: 20 MILLIGRAM, QHS EVERY 24 HOURS ONE HOUR BEFORE BEDTIME
     Route: 048
     Dates: start: 20190605
  2. DOXYCYCLINE HYCLATE [Suspect]
     Active Substance: DOXYCYCLINE HYCLATE
     Indication: Sinusitis
  3. METHENAMINE HIPPURATE [Concomitant]
     Active Substance: METHENAMINE HIPPURATE
     Indication: Product used for unknown indication
  4. CIPRO [Concomitant]
     Active Substance: CIPROFLOXACIN HYDROCHLORIDE
     Indication: Product used for unknown indication
  5. XARELTO [Concomitant]
     Active Substance: RIVAROXABAN
     Indication: Product used for unknown indication

REACTIONS (12)
  - Urinary tract infection [Unknown]
  - Bladder prolapse [Unknown]
  - Diarrhoea [Unknown]
  - Sinusitis [Unknown]
  - Illness [Unknown]
  - Haemorrhoids [Unknown]
  - Nausea [Unknown]
  - Vomiting [Unknown]
  - Weight decreased [Unknown]
  - Abdominal discomfort [Unknown]
  - Pain [Unknown]
  - Product dose omission issue [Unknown]
